FAERS Safety Report 7866071-5 (Version None)
Quarter: 2011Q4

REPORT INFORMATION
  Report Type: 
  Country: None (occurrence: None)
  Receive Date: 20111028
  Receipt Date: 20110419
  Transmission Date: 20120403
  Serious: No
  Sender: FDA-Public Use
  Company Number: US-GLAXOSMITHKLINE-A0923580A

PATIENT
  Age: 53 Year
  Sex: Female

DRUGS (4)
  1. ADVAIR DISKUS 100/50 [Suspect]
     Dosage: 2PUFF TWICE PER DAY
     Route: 055
     Dates: start: 20090101, end: 20110101
  2. FORADIL [Suspect]
     Indication: DYSPNOEA
     Route: 065
  3. SPIRIVA [Concomitant]
  4. ADVAIR DISKUS 100/50 [Suspect]
     Indication: DYSPNOEA
     Dosage: 2PUFF TWICE PER DAY
     Route: 055
     Dates: start: 19970101

REACTIONS (2)
  - DYSPHONIA [None]
  - DYSPNOEA [None]
